FAERS Safety Report 6520343-5 (Version None)
Quarter: 2009Q4

REPORT INFORMATION
  Report Type: 
  Country: None (occurrence: None)
  Receive Date: 20091229
  Receipt Date: 20091222
  Transmission Date: 20100525
  Serious: Yes (Hospitalization)
  Sender: FDA-Public Use
  Company Number: AU-SP-2009-05516

PATIENT
  Age: 68 Year
  Sex: Male

DRUGS (2)
  1. IMMUCYST [Suspect]
     Indication: TRANSITIONAL CELL CARCINOMA
     Route: 043
     Dates: start: 20091109, end: 20091109
  2. IMMUCYST [Suspect]
     Route: 043
     Dates: start: 20091116, end: 20091116

REACTIONS (3)
  - BOVINE TUBERCULOSIS [None]
  - HAEMATURIA [None]
  - SEPSIS [None]
